FAERS Safety Report 24217512 (Version 1)
Quarter: 2024Q3

REPORT INFORMATION
  Report Type: Spontaneous
  Country: FR (occurrence: FR)
  Receive Date: 20240816
  Receipt Date: 20240816
  Transmission Date: 20241017
  Serious: Yes (Hospitalization)
  Sender: PFIZER
  Company Number: None

PATIENT
  Age: 23 Year
  Sex: Female
  Weight: 60 kg

DRUGS (3)
  1. VINCRISTINE [Suspect]
     Active Substance: VINCRISTINE
     Indication: Rhabdomyosarcoma
     Dosage: 2 MG/ CYCLE
     Route: 042
     Dates: start: 20230904, end: 20230904
  2. ETOPOSIDE [Suspect]
     Active Substance: ETOPOSIDE
     Indication: Rhabdomyosarcoma
     Dosage: 200 MG, 2X/DAY
     Route: 042
     Dates: start: 20230904, end: 20230907
  3. IFOSFAMIDE [Suspect]
     Active Substance: IFOSFAMIDE
     Indication: Rhabdomyosarcoma
     Dosage: UNK
     Route: 042
     Dates: start: 20230904, end: 20230907

REACTIONS (1)
  - Venoocclusive disease [Recovered/Resolved]

NARRATIVE: CASE EVENT DATE: 20230917
